FAERS Safety Report 13493801 (Version 3)
Quarter: 2018Q1

REPORT INFORMATION
  Report Type: Report from Study
  Country: US (occurrence: US)
  Receive Date: 20170427
  Receipt Date: 20180116
  Transmission Date: 20180508
  Serious: No
  Sender: FDA-Public Use
  Company Number: US-AMGEN-USASL2017034042

PATIENT
  Age: 51 Year
  Sex: Female

DRUGS (3)
  1. WELCHOL [Concomitant]
     Active Substance: COLESEVELAM HYDROCHLORIDE
  2. REPATHA [Suspect]
     Active Substance: EVOLOCUMAB
     Indication: TYPE IIA HYPERLIPIDAEMIA
     Dosage: 140 MG, Q2WK
     Route: 065
  3. ZETIA [Suspect]
     Active Substance: EZETIMIBE
     Indication: PRODUCT USED FOR UNKNOWN INDICATION
     Route: 065

REACTIONS (10)
  - Rash [Unknown]
  - Injection site pain [Unknown]
  - Swelling [Unknown]
  - Eyelid irritation [Unknown]
  - Swelling face [Unknown]
  - Erythema [Unknown]
  - Muscle spasms [Unknown]
  - Back pain [Unknown]
  - Chronic sinusitis [Unknown]
  - Headache [Unknown]
